FAERS Safety Report 8144917 (Version 3)
Quarter: 2014Q1

REPORT INFORMATION
  Report Type: Report from Study
  Country: CA (occurrence: CA)
  Receive Date: 20110920
  Receipt Date: 20140331
  Transmission Date: 20141002
  Serious: Yes (Other)
  Sender: FDA-Public Use
  Company Number: PHHY2011CA82381

PATIENT
  Sex: Male

DRUGS (3)
  1. SANDOSTATIN LAR [Suspect]
     Indication: CARCINOID TUMOUR
     Dosage: UNK UKN, UNK
  2. SANDOSTATIN LAR [Suspect]
     Dosage: 30 MG, QMO
     Route: 030
     Dates: start: 20070315
  3. CHEMOTHERAPEUTICS [Concomitant]
     Dosage: UNK UKN, UNK

REACTIONS (12)
  - Malignant neoplasm progression [Unknown]
  - Neoplasm recurrence [Unknown]
  - Condition aggravated [Unknown]
  - Gait disturbance [Unknown]
  - Pain in extremity [Unknown]
  - Limb discomfort [Unknown]
  - Nervousness [Unknown]
  - Blood potassium decreased [Unknown]
  - Blood count abnormal [Unknown]
  - Fatigue [Not Recovered/Not Resolved]
  - Nausea [Unknown]
  - Malaise [Recovering/Resolving]
